FAERS Safety Report 18955315 (Version 1)
Quarter: 2021Q1

REPORT INFORMATION
  Report Type: Spontaneous
  Country: ES (occurrence: ES)
  Receive Date: 20210301
  Receipt Date: 20210301
  Transmission Date: 20210420
  Serious: Yes (Death, Hospitalization, Other)
  Sender: FDA-Public Use
  Company Number: NVSC2020ES198212

PATIENT
  Age: 52 Year
  Sex: Female

DRUGS (8)
  1. AZACITIDINE. [Suspect]
     Active Substance: AZACITIDINE
     Dosage: UNK UNK, CYCLIC (2ND CYCLE)
     Route: 065
     Dates: start: 20200218
  2. AZACITIDINE. [Suspect]
     Active Substance: AZACITIDINE
     Dosage: UNK UNK, CYCLIC (3RD CYCLE)
     Route: 065
     Dates: start: 20200326
  3. TACROLIMUS. [Suspect]
     Active Substance: TACROLIMUS
     Indication: IMMUNOSUPPRESSION
     Dosage: UNK
     Route: 065
  4. AZACITIDINE. [Suspect]
     Active Substance: AZACITIDINE
     Indication: ACUTE MYELOID LEUKAEMIA REFRACTORY
     Dosage: UNK UNK, CYCLIC
     Route: 065
  5. AZACITIDINE. [Suspect]
     Active Substance: AZACITIDINE
     Dosage: 75 MG/M2, CYCLIC
     Route: 065
     Dates: start: 20200120
  6. GILTERITINIB [Suspect]
     Active Substance: GILTERITINIB
     Indication: ACUTE MYELOID LEUKAEMIA REFRACTORY
     Dosage: 140 MG, QD
     Route: 065
     Dates: start: 20200131, end: 20200511
  7. AZACITIDINE. [Suspect]
     Active Substance: AZACITIDINE
     Dosage: UNK UNK, CYCLIC (4TH CYCLE)
     Route: 065
     Dates: start: 20200525
  8. GILTERITINIB [Suspect]
     Active Substance: GILTERITINIB
     Dosage: UNK
     Route: 065
     Dates: start: 20200522

REACTIONS (30)
  - Death [Fatal]
  - Abdominal pain [Not Recovered/Not Resolved]
  - Candida infection [Unknown]
  - Aplasia [Not Recovered/Not Resolved]
  - Graft versus host disease in liver [Unknown]
  - Liver abscess [Unknown]
  - Staphylococcus test positive [Unknown]
  - Infection [Unknown]
  - Hepatic mass [Unknown]
  - Cholangiocarcinoma [Unknown]
  - Hepatic function abnormal [Unknown]
  - Pyrexia [Not Recovered/Not Resolved]
  - Noninfective sialoadenitis [Unknown]
  - Portal vein thrombosis [Unknown]
  - Fungal skin infection [Unknown]
  - Dilatation intrahepatic duct acquired [Unknown]
  - Febrile neutropenia [Unknown]
  - Disseminated aspergillosis [Unknown]
  - Stenotrophomonas infection [Unknown]
  - General physical health deterioration [Unknown]
  - Leukaemic infiltration extramedullary [Unknown]
  - Shock haemorrhagic [Unknown]
  - Gastrointestinal haemorrhage [Unknown]
  - Pancytopenia [Unknown]
  - Bronchopulmonary aspergillosis [Unknown]
  - Biliary tract infection fungal [Unknown]
  - Myeloid leukaemia [Unknown]
  - Central nervous system fungal infection [Unknown]
  - Escherichia test positive [Unknown]
  - Product use issue [Unknown]

NARRATIVE: CASE EVENT DATE: 20191126
